FAERS Safety Report 4360104-9 (Version None)
Quarter: 2004Q2

REPORT INFORMATION
  Report Type: 
  Country: None (occurrence: None)
  Receive Date: 20040519
  Receipt Date: 20040427
  Transmission Date: 20050107
  Serious: Yes (Hospitalization)
  Sender: FDA-Public Use
  Company Number: PHBS2004JP05832

PATIENT
  Age: 50 Year
  Sex: Male
  Weight: 65 kg

DRUGS (9)
  1. CARBAMAZEPINE [Suspect]
     Indication: BIPOLAR I DISORDER
     Dosage: 300 MG/DAY
     Route: 048
     Dates: start: 20020301, end: 20020815
  2. PHENYTOIN [Suspect]
     Indication: BIPOLAR I DISORDER
     Dosage: 200 MG/DAY
     Route: 048
     Dates: start: 20020706, end: 20020815
  3. LEVOMEPROMAZINE [Concomitant]
     Indication: BIPOLAR I DISORDER
     Dosage: 150 MG/DAY
     Route: 048
     Dates: start: 20020301, end: 20020815
  4. MIANSERIN [Concomitant]
     Indication: BIPOLAR I DISORDER
     Dosage: 30 MG/DAY
     Route: 048
     Dates: start: 20020301, end: 20020815
  5. BROTIZOLAM [Concomitant]
     Indication: BIPOLAR I DISORDER
     Dosage: 5 MG/DAY
     Route: 048
     Dates: start: 20020301, end: 20020815
  6. FAMOTIDINE [Concomitant]
     Dosage: 40 MG/DAY
     Route: 048
     Dates: start: 19870101, end: 20020815
  7. ALLOPURINOL TAB [Concomitant]
     Indication: HYPERURICAEMIA
     Dosage: 200 MG/DAY
     Route: 048
     Dates: start: 19870101, end: 20020815
  8. BEZAFIBRATE [Concomitant]
     Indication: HYPERLIPIDAEMIA
     Dosage: 400 MG/DAY
     Route: 048
     Dates: start: 19870101, end: 20020815
  9. BROMAZEPAM [Concomitant]
     Dosage: 5 MG, QD

REACTIONS (19)
  - ALANINE AMINOTRANSFERASE INCREASED [None]
  - ASPARTATE AMINOTRANSFERASE INCREASED [None]
  - BLOOD ALKALINE PHOSPHATASE INCREASED [None]
  - BLOOD LACTATE DEHYDROGENASE INCREASED [None]
  - BLOOD PRESSURE DECREASED [None]
  - EOSINOPHIL COUNT INCREASED [None]
  - ERYTHEMA [None]
  - EXANTHEM [None]
  - GAMMA-GLUTAMYLTRANSFERASE INCREASED [None]
  - HYPERSENSITIVITY [None]
  - INJURY [None]
  - LIVER DISORDER [None]
  - LYMPHOCYTE STIMULATION TEST POSITIVE [None]
  - PYREXIA [None]
  - RASH [None]
  - STOMATITIS [None]
  - SUBARACHNOID HAEMORRHAGE [None]
  - URTICARIA [None]
  - WHITE BLOOD CELL COUNT INCREASED [None]
